FAERS Safety Report 12010119 (Version 1)
Quarter: 2016Q1

REPORT INFORMATION
  Report Type: Spontaneous
  Country: US (occurrence: None)
  Receive Date: 20160204
  Receipt Date: 20160204
  Transmission Date: 20160526
  Serious: Yes (Other)
  Sender: FDA-Public Use
  Company Number: None

PATIENT
  Age: 56 Year
  Sex: Female
  Weight: 82.56 kg

DRUGS (18)
  1. ROXICODONE [Suspect]
     Active Substance: OXYCODONE HYDROCHLORIDE
     Indication: BACK PAIN
     Route: 048
     Dates: start: 20130402
  2. NITROSTAT [Concomitant]
     Active Substance: NITROGLYCERIN
  3. ZANTAC [Concomitant]
     Active Substance: RANITIDINE HYDROCHLORIDE
  4. OXYCONTIN [Concomitant]
     Active Substance: OXYCODONE HYDROCHLORIDE
  5. TUSSIONEX PENNKINETIC [Concomitant]
     Active Substance: CHLORPHENIRAMINE\HYDROCODONE
  6. OXYGEN. [Concomitant]
     Active Substance: OXYGEN
  7. SILVADENE [Concomitant]
     Active Substance: SILVER SULFADIAZINE
  8. VITAMIN D3 [Concomitant]
     Active Substance: CHOLECALCIFEROL
  9. VALIUM [Concomitant]
     Active Substance: DIAZEPAM
  10. ACCOLATE [Concomitant]
     Active Substance: ZAFIRLUKAST
  11. ASMANAX [Concomitant]
  12. BABY ASPIRIN [Concomitant]
     Active Substance: ASPIRIN
  13. HAIR, SKIN + NAILS [Concomitant]
  14. CLARITIN [Concomitant]
     Active Substance: LORATADINE
  15. ROXICODONE [Suspect]
     Active Substance: OXYCODONE HYDROCHLORIDE
     Indication: PAIN
     Route: 048
     Dates: start: 20130402
  16. ROXICODONE [Suspect]
     Active Substance: OXYCODONE HYDROCHLORIDE
     Indication: CERVICAL SPINAL STENOSIS
     Route: 048
     Dates: start: 20130402
  17. POLYETHYLENE GLYCOL [Concomitant]
     Active Substance: POLYETHYLENE GLYCOLS
  18. FISH OIL [Concomitant]
     Active Substance: FISH OIL

REACTIONS (2)
  - Product substitution issue [None]
  - Migraine [None]

NARRATIVE: CASE EVENT DATE: 20160129
